FAERS Safety Report 10464816 (Version 1)
Quarter: 2014Q3

REPORT INFORMATION
  Report Type: Report from Study
  Country: CO (occurrence: CO)
  Receive Date: 20140919
  Receipt Date: 20140919
  Transmission Date: 20150326
  Serious: Yes (Death, Hospitalization)
  Sender: FDA-Public Use
  Company Number: CO-BRISTOL-MYERS SQUIBB COMPANY-21389192

PATIENT
  Age: 58 Year
  Sex: Female

DRUGS (1)
  1. IXEMPRA [Suspect]
     Active Substance: IXABEPILONE
     Indication: BREAST CANCER METASTATIC
     Route: 042
     Dates: start: 20140811

REACTIONS (3)
  - Pain [Unknown]
  - Respiratory arrest [Fatal]
  - Inflammation [Unknown]

NARRATIVE: CASE EVENT DATE: 20140817
